FAERS Safety Report 22010519 (Version 1)
Quarter: 2023Q1

REPORT INFORMATION
  Report Type: Spontaneous
  Country: GB (occurrence: GB)
  Receive Date: 20230220
  Receipt Date: 20230220
  Transmission Date: 20230417
  Serious: Yes (Death)
  Sender: FDA-Public Use
  Company Number: None

PATIENT
  Age: 42 Year
  Sex: Female

DRUGS (36)
  1. SIMVASTATIN [Suspect]
     Active Substance: SIMVASTATIN
     Dosage: AT BEDTIME
     Route: 048
     Dates: start: 20221214, end: 20221221
  2. ACETYLCYSTEINE [Concomitant]
     Active Substance: ACETYLCYSTEINE
     Dosage: LEFT EYE
     Dates: start: 20221221
  3. CALCIUM CARBONATE\CHOLECALCIFEROL [Concomitant]
     Active Substance: CALCIUM CARBONATE\CHOLECALCIFEROL
     Route: 048
     Dates: start: 20221213
  4. AQUEOUS CREAM [Concomitant]
     Route: 061
     Dates: start: 20221214
  5. BECLOMETHASONE DIPROPIONATE [Concomitant]
     Active Substance: BECLOMETHASONE DIPROPIONATE
     Route: 055
     Dates: start: 20221220
  6. UNSPECIFIED INGREDIENT [Concomitant]
     Active Substance: UNSPECIFIED INGREDIENT
     Dosage: AS PRESCRIBED ON ARIA UNSCHEDULED NOT APPLICABLE
     Dates: start: 20221219
  7. ALFENTANIL [Concomitant]
     Active Substance: ALFENTANIL
     Route: 058
     Dates: start: 20221219
  8. DEXAMETHASONE [Concomitant]
     Active Substance: DEXAMETHASONE
     Dosage: LEFT EYE
     Dates: start: 20221219
  9. DOBUTAMINE [Concomitant]
     Active Substance: DOBUTAMINE HYDROCHLORIDE
     Dosage: CENTRAL
     Route: 042
     Dates: start: 20221220
  10. DEXTROSE [Concomitant]
     Active Substance: DEXTROSE
     Route: 042
     Dates: start: 20221219
  11. KABIVEN [Concomitant]
     Active Substance: AMINO ACIDS\ANHYDROUS DEXTROSE\CALCIUM CHLORIDE\MAGNESIUM SULFATE HEPTAHYDRATE\POTASSIUM CHLORIDE\SO
     Dosage: 1 BAG(S)
     Route: 042
     Dates: start: 20221219, end: 20221220
  12. FENTANYL [Concomitant]
     Active Substance: FENTANYL
     Dosage: 4MICROGRAM/ML. 500ML INFUSION.
     Route: 008
     Dates: start: 20221219
  13. LEVOBUPIVACAINE [Concomitant]
     Active Substance: LEVOBUPIVACAINE
     Route: 008
     Dates: start: 20221219
  14. NOREPINEPHRINE [Concomitant]
     Active Substance: NOREPINEPHRINE
     Dosage: CENTRAL
     Route: 042
     Dates: start: 20221220
  15. NOVORAPID [Concomitant]
     Active Substance: INSULIN ASPART
     Dosage: REFER TO STRUCTURED NOTES FOR REGIMEN UNSCHEDULED
     Route: 058
     Dates: start: 20221219, end: 20221220
  16. HUMAN RED BLOOD CELL [Concomitant]
     Active Substance: HUMAN RED BLOOD CELL
     Dosage: ALIQUOT(S) OR UNIT(S) TO PRESCRIBED VOLU UNSCHEDULED. 4 DOSES.
     Route: 042
     Dates: start: 20221219
  17. ISONIAZID\RIFAMPIN [Concomitant]
     Active Substance: ISONIAZID\RIFAMPIN
     Indication: Tuberculosis
     Dosage: 150 MG-100 MG
     Route: 048
     Dates: start: 20221221
  18. TIMOLOL. [Concomitant]
     Dosage: LEFT EYE
     Dates: start: 20221220
  19. TRIMOVATE [Concomitant]
     Active Substance: CLOBETASONE BUTYRATE\NYSTATIN\OXYTETRACYCLINE CALCIUM
     Route: 061
     Dates: start: 20221214
  20. WARFARIN [Concomitant]
     Active Substance: WARFARIN
     Dosage: AT MIDDAY
     Route: 048
     Dates: start: 20221220
  21. AMOXICILLIN [Concomitant]
     Active Substance: AMOXICILLIN
     Indication: Pneumonia
     Route: 048
     Dates: start: 20221220
  22. APIXABAN. [Concomitant]
     Indication: Atrial fibrillation
     Route: 048
     Dates: start: 20221220
  23. ASPIRIN [Concomitant]
     Active Substance: ASPIRIN
     Dosage: MORNING
     Route: 048
     Dates: start: 20221215
  24. CLONAZEPAM [Concomitant]
     Active Substance: CLONAZEPAM
     Dosage: AT BEDTIME
     Route: 048
     Dates: start: 20221220
  25. DIAZEPAM [Concomitant]
     Active Substance: DIAZEPAM
     Dosage: AT BEDTIME
     Route: 048
     Dates: start: 20221219
  26. ENOXAPARIN [Concomitant]
     Active Substance: ENOXAPARIN
     Indication: Embolism venous
     Dosage: EVERY EVENING AT 6PM
     Route: 058
     Dates: start: 20221214
  27. IBUPROFEN [Concomitant]
     Active Substance: IBUPROFEN
     Route: 048
     Dates: start: 20221219
  28. IMMUNOGLOBULIN [Concomitant]
     Indication: Immune thrombocytopenia
     Dosage: FOR 3 DAY(S)
     Route: 042
     Dates: start: 20221220, end: 20221223
  29. METFORMIN [Concomitant]
     Active Substance: METFORMIN HYDROCHLORIDE
     Dosage: AT 8AM AND 6PM
     Route: 048
     Dates: start: 20221219
  30. MORPHINE SULFATE [Concomitant]
     Active Substance: MORPHINE SULFATE
     Dosage: (ADDITIVE FOR INFUSION) 1-2MG PRN FOR 5 DOSE(S)?10 MG TWICE A DAY ORAL
     Route: 042
     Dates: start: 20221219
  31. ONDANSETRON [Concomitant]
     Active Substance: ONDANSETRON
     Dosage: ORAL/ INTRAVENOUS/ INTRAMUSCULAR
     Dates: start: 20221221
  32. OXYGEN [Concomitant]
     Active Substance: OXYGEN
     Dosage: 2 L/MIN AS REQUIRED INHALED
     Route: 055
     Dates: start: 20221219
  33. PREDNISOLONE [Concomitant]
     Active Substance: PREDNISOLONE
     Dosage: EVERY MORNING
     Route: 048
     Dates: start: 20221221, end: 20221222
  34. ALBUTEROL [Concomitant]
     Active Substance: ALBUTEROL
     Route: 042
     Dates: start: 20221220
  35. VALPROATE SODIUM [Concomitant]
     Active Substance: VALPROATE SODIUM
     Route: 048
     Dates: start: 20221220
  36. SODIUM CHLORIDE [Concomitant]
     Active Substance: SODIUM CHLORIDE
     Dosage: DILUENT FOR PCA

REACTIONS (2)
  - Death [Fatal]
  - Myalgia [Not Recovered/Not Resolved]
